FAERS Safety Report 6110637-X (Version None)
Quarter: 2009Q1

REPORT INFORMATION
  Report Type: 
  Country: None (occurrence: None)
  Receive Date: 20090306
  Receipt Date: 20090227
  Transmission Date: 20090719
  Serious: Yes (Hospitalization)
  Sender: FDA-Public Use
  Company Number: 1000004996

PATIENT
  Age: 78 Year
  Sex: Female

DRUGS (7)
  1. LEXAPRO [Suspect]
     Indication: DEPRESSION
     Dosage: 10 MG (10 MG, 1 IN 1 D ), ORAL
     Route: 048
     Dates: start: 20080101
  2. NORVASC [Concomitant]
  3. DIOVAN (TABLETS) [Concomitant]
  4. FOSAMAX [Concomitant]
  5. ADVAIR (AEROSOL FOR INHALATION) [Concomitant]
  6. COMBIVENT (AEROSOL FOR INHALATION) [Concomitant]
  7. CALCIUM (TABLETS) [Concomitant]

REACTIONS (6)
  - COMA [None]
  - FACIAL BONES FRACTURE [None]
  - FALL [None]
  - FATIGUE [None]
  - HEADACHE [None]
  - THYROID NEOPLASM [None]
